FAERS Safety Report 21610880 (Version 1)
Quarter: 2022Q4

REPORT INFORMATION
  Report Type: Spontaneous
  Country: FR (occurrence: FR)
  Receive Date: 20221117
  Receipt Date: 20221117
  Transmission Date: 20230113
  Serious: Yes (Other)
  Sender: FDA-Public Use
  Company Number: None

PATIENT
  Age: 74 Year
  Sex: Male
  Weight: 92 kg

DRUGS (3)
  1. PAXLOVID [Interacting]
     Active Substance: NIRMATRELVIR\RITONAVIR
     Indication: COVID-19 treatment
     Dosage: [PF-07321332 300MG] / [RITONAVIR 100MG] 2X/DAY
     Route: 048
     Dates: start: 20221017, end: 20221022
  2. ATENOLOL [Interacting]
     Active Substance: ATENOLOL
     Dosage: 25 MG, 1X/DAY (MORNING)
     Route: 048
     Dates: start: 20221018, end: 20221019
  3. ATENOLOL [Interacting]
     Active Substance: ATENOLOL
     Dosage: 12.5 MG, 1X/DAY (MORNING)
     Route: 048
     Dates: start: 20221020, end: 20221020

REACTIONS (5)
  - Asthenia [Recovering/Resolving]
  - Bradycardia [Recovering/Resolving]
  - Hypotension [Recovering/Resolving]
  - Palpitations [Recovering/Resolving]
  - Drug interaction [Recovering/Resolving]

NARRATIVE: CASE EVENT DATE: 20221019
